FAERS Safety Report 11915679 (Version 1)
Quarter: 2016Q1

REPORT INFORMATION
  Report Type: Spontaneous
  Country: US (occurrence: None)
  Receive Date: 20160113
  Receipt Date: 20160113
  Transmission Date: 20160526
  Serious: Yes (Hospitalization)
  Sender: FDA-Public Use
  Company Number: None

PATIENT
  Age: 58 Year
  Sex: Female

DRUGS (1)
  1. METFORMIN [Suspect]
     Active Substance: METFORMIN HYDROCHLORIDE

REACTIONS (8)
  - Pyrexia [None]
  - Chest pain [None]
  - Diarrhoea [None]
  - Lactic acidosis [None]
  - Blood pressure decreased [None]
  - Arthralgia [None]
  - Asthenia [None]
  - Myalgia [None]
